FAERS Safety Report 4307385-5 (Version None)
Quarter: 2004Q1

REPORT INFORMATION
  Report Type: 
  Country: None (occurrence: None)
  Receive Date: 20040226
  Receipt Date: 20040213
  Transmission Date: 20041129
  Serious: Yes (Hospitalization, Other)
  Sender: FDA-Public Use
  Company Number: 2004010848

PATIENT
  Age: 59 Year
  Sex: Male

DRUGS (14)
  1. GABAPENTIN [Suspect]
     Indication: PAIN
     Dosage: 600 MG (200 MG TID), ORAL
     Route: 048
     Dates: start: 20031201
  2. OXYCODONE AND ACETAMINOPHEN [Suspect]
     Indication: PAIN
     Dosage: TWO TABLETS Q4H, ORAL
     Route: 048
     Dates: end: 20031216
  3. OXYCODONE HCL [Suspect]
     Indication: PAIN
     Dosage: 60 MG (BID), ORAL
     Route: 048
  4. TRACLEER [Suspect]
     Indication: PULMONARY HYPERTENSION
     Dosage: 62.5 MG BID
     Dates: start: 20031101
  5. WARFARIN SODIUM [Concomitant]
  6. FUROSEMIDE [Concomitant]
  7. PREDNISONE [Concomitant]
  8. EPOPROSTENOL SODIUM (EPOPROSTENOL SODIUM) [Concomitant]
  9. PANTOPRAZOLE (PANTOPRAZOLE) [Concomitant]
  10. METFORMIN HCL [Concomitant]
  11. BACTRIM [Concomitant]
  12. OXYGEN (OXYGEN) [Concomitant]
  13. LISINOPRIL [Concomitant]
  14. METOLAZONE [Concomitant]

REACTIONS (5)
  - BLOOD CREATININE INCREASED [None]
  - MENTAL STATUS CHANGES [None]
  - MYOCLONUS [None]
  - OEDEMA PERIPHERAL [None]
  - SOMNOLENCE [None]
